FAERS Safety Report 7559560-4 (Version None)
Quarter: 2011Q2

REPORT INFORMATION
  Report Type: 
  Country: None (occurrence: None)
  Receive Date: 20110617
  Receipt Date: 20110617
  Transmission Date: 20111010
  Serious: Yes (Other)
  Sender: FDA-Public Use
  Company Number: None

PATIENT
  Age: 48 Year
  Sex: Female

DRUGS (1)
  1. REVLIMID [Suspect]
     Indication: MULTIPLE MYELOMA
     Dosage: REVLIMID 10MG DAILY X21D/28D ORALLY
     Route: 048
     Dates: start: 20110501, end: 20110519

REACTIONS (2)
  - RASH ERYTHEMATOUS [None]
  - NO THERAPEUTIC RESPONSE [None]
